FAERS Safety Report 5577831-8 (Version None)
Quarter: 2007Q4

REPORT INFORMATION
  Report Type: 
  Country: None (occurrence: None)
  Receive Date: 20071227
  Receipt Date: 20071217
  Transmission Date: 20080405
  Serious: Yes (Hospitalization)
  Sender: FDA-Public Use
  Company Number: 2007SP004127

PATIENT
  Age: 72 Year
  Sex: Female

DRUGS (5)
  1. XOPENEX [Suspect]
     Indication: CHRONIC OBSTRUCTIVE PULMONARY DISEASE
     Dosage: 1.25 MG/3ML; 1X; INHALATION; 0.63 MG/ 3ML; TID; INHALATION
     Route: 055
     Dates: start: 20071205, end: 20071205
  2. XOPENEX [Suspect]
     Indication: EMPHYSEMA
     Dosage: 1.25 MG/3ML; 1X; INHALATION; 0.63 MG/ 3ML; TID; INHALATION
     Route: 055
     Dates: start: 20071205, end: 20071205
  3. XOPENEX [Suspect]
     Indication: CHRONIC OBSTRUCTIVE PULMONARY DISEASE
     Dosage: 1.25 MG/3ML; 1X; INHALATION; 0.63 MG/ 3ML; TID; INHALATION
     Route: 055
     Dates: start: 20071201
  4. XOPENEX [Suspect]
     Indication: EMPHYSEMA
     Dosage: 1.25 MG/3ML; 1X; INHALATION; 0.63 MG/ 3ML; TID; INHALATION
     Route: 055
     Dates: start: 20071201
  5. ALBUTEROL [Concomitant]

REACTIONS (7)
  - AMYLOIDOSIS [None]
  - CARDIAC FAILURE [None]
  - CONDITION AGGRAVATED [None]
  - MALAISE [None]
  - NASOPHARYNGITIS [None]
  - PALPITATIONS [None]
  - PULMONARY OEDEMA [None]
